FAERS Safety Report 13921493 (Version 1)
Quarter: 2017Q3

REPORT INFORMATION
  Report Type: Report from Study
  Country: US (occurrence: US)
  Receive Date: 20170830
  Receipt Date: 20170830
  Transmission Date: 20171127
  Serious: Yes (Other)
  Sender: FDA-Public Use
  Company Number: US-CELGENEUS-USA-20170808439

PATIENT

DRUGS (8)
  1. POMALYST [Suspect]
     Active Substance: POMALIDOMIDE
     Indication: AMYLOIDOSIS
     Dosage: 2 MILLIGRAM
     Route: 048
  2. ASPIRIN. [Concomitant]
     Active Substance: ASPIRIN
     Indication: ANTICOAGULANT THERAPY
     Route: 065
  3. ACYCLOVIR. [Concomitant]
     Active Substance: ACYCLOVIR
     Indication: PRODUCT USED FOR UNKNOWN INDICATION
     Route: 065
  4. POMALYST [Suspect]
     Active Substance: POMALIDOMIDE
     Dosage: 4 MILLIGRAM
     Route: 048
  5. BORTEZOMIB [Suspect]
     Active Substance: BORTEZOMIB
     Indication: AMYLOIDOSIS
     Dosage: 1 MILLIGRAM/SQ. METER
     Route: 058
  6. POMALYST [Suspect]
     Active Substance: POMALIDOMIDE
     Dosage: 3 MILLIGRAM
     Route: 048
  7. BORTEZOMIB [Suspect]
     Active Substance: BORTEZOMIB
     Dosage: 1.3 MILLIGRAM/SQ. METER
     Route: 058
  8. DEXAMETHASONE. [Suspect]
     Active Substance: DEXAMETHASONE
     Indication: AMYLOIDOSIS
     Dosage: 40 MILLIGRAM
     Route: 048

REACTIONS (37)
  - Mania [Unknown]
  - Autonomic neuropathy [Unknown]
  - Phlebitis [Unknown]
  - Depression [Unknown]
  - Pyrexia [Unknown]
  - Urinary tract infection [Unknown]
  - Blood creatinine increased [Unknown]
  - Hypotension [Unknown]
  - Fatigue [Unknown]
  - Affect lability [Unknown]
  - Hypokalaemia [Unknown]
  - Dyspnoea [Unknown]
  - Arthritis [Unknown]
  - Decreased appetite [Unknown]
  - Rash [Unknown]
  - Upper respiratory tract infection [Unknown]
  - Lung infection [Unknown]
  - Syncope [Unknown]
  - Myalgia [Unknown]
  - Localised oedema [Unknown]
  - Muscular weakness [Unknown]
  - Fall [Unknown]
  - Diarrhoea [Unknown]
  - Oedema peripheral [Unknown]
  - Hypoxia [Unknown]
  - Cardiac failure [Unknown]
  - Hyponatraemia [Unknown]
  - Neutrophil count decreased [Unknown]
  - Hypercalcaemia [Unknown]
  - Constipation [Unknown]
  - Peripheral sensory neuropathy [Unknown]
  - Pain in extremity [Unknown]
  - Dizziness [Unknown]
  - Pleural effusion [Unknown]
  - Atrial tachycardia [Unknown]
  - Tinnitus [Unknown]
  - Anaemia [Unknown]
